FAERS Safety Report 4320542-7 (Version None)
Quarter: 2004Q1

REPORT INFORMATION
  Report Type: 
  Country: None (occurrence: None)
  Receive Date: 20040315
  Receipt Date: 20040224
  Transmission Date: 20041129
  Serious: Yes (Hospitalization)
  Sender: FDA-Public Use
  Company Number: 2004198260US

PATIENT
  Age: 61 Year
  Sex: Female
  Weight: 112.5 kg

DRUGS (6)
  1. BEXTRA [Suspect]
     Indication: POST PROCEDURAL PAIN
     Dosage: 20 MG, BID, ORAL
     Route: 048
     Dates: start: 20031127, end: 20031224
  2. DIOVAN [Concomitant]
  3. ALLEGRA [Concomitant]
  4. SUDAFED S.A. [Concomitant]
  5. LANTUS INSULIN (INSULIN) [Concomitant]
  6. HUMALOG [Concomitant]

REACTIONS (1)
  - CARDIAC FAILURE CONGESTIVE [None]
